FAERS Safety Report 12386410 (Version 1)
Quarter: 2016Q2

REPORT INFORMATION
  Report Type: Report from Study
  Country: US (occurrence: US)
  Receive Date: 20160519
  Receipt Date: 20160519
  Transmission Date: 20160815
  Serious: Yes (Life-Threatening, Hospitalization, Other)
  Sender: FDA-Public Use
  Company Number: US-MDT-ADR-2016-00437

PATIENT
  Age: 73 Year
  Sex: Male

DRUGS (1)
  1. LIORESAL [Suspect]
     Active Substance: BACLOFEN
     Dosage: 449.6MCG/DAY
     Route: 037

REACTIONS (4)
  - Medical device site infection [Unknown]
  - Wound dehiscence [Unknown]
  - Cystitis [Unknown]
  - Malaise [Unknown]

NARRATIVE: CASE EVENT DATE: 20160301
